FAERS Safety Report 8536825-0 (Version None)
Quarter: 2012Q3

REPORT INFORMATION
  Report Type: 
  Country: None (occurrence: None)
  Receive Date: 20120725
  Receipt Date: 20120716
  Transmission Date: 20120928
  Serious: Yes (Hospitalization)
  Sender: FDA-Public Use
  Company Number: US-ELI_LILLY_AND_COMPANY-US201207005120

PATIENT
  Sex: Female

DRUGS (6)
  1. OTHER ANTIHYPERTENSIVES [Concomitant]
  2. VALIUM [Concomitant]
  3. ASPIRIN [Concomitant]
  4. ANTICHOLINESTERASES [Concomitant]
  5. EFFIENT [Suspect]
     Indication: STENT PLACEMENT
     Dosage: 10 MG, QD
     Dates: start: 20120307
  6. NIACIN [Concomitant]

REACTIONS (5)
  - SKIN DISCOLOURATION [None]
  - BLOOD PRESSURE DECREASED [None]
  - SINUS CONGESTION [None]
  - GASTROINTESTINAL HAEMORRHAGE [None]
  - DIZZINESS [None]
